FAERS Safety Report 9305156 (Version 3)
Quarter: 2013Q2

REPORT INFORMATION
  Report Type: Spontaneous
  Country: GB (occurrence: GB)
  Receive Date: 20130523
  Receipt Date: 20130617
  Transmission Date: 20140414
  Serious: Yes (Hospitalization)
  Sender: FDA-Public Use
  Company Number: PHFR2013GB002968

PATIENT
  Age: 55 Year
  Sex: Male

DRUGS (4)
  1. CLOZARIL [Suspect]
     Indication: SCHIZOPHRENIA
     Dosage: UNK
     Route: 048
     Dates: start: 20020118
  2. CLOZARIL [Suspect]
     Dosage: 800 MG, DAILY.
     Route: 048
  3. HYOSCINE HYDROBROMIDE [Concomitant]
     Indication: SALIVARY HYPERSECRETION
     Dosage: 300 UG, DAILY.
     Route: 048
  4. INSULIN [Concomitant]
     Dosage: UNK

REACTIONS (1)
  - Subcutaneous abscess [Recovered/Resolved]
